FAERS Safety Report 10802567 (Version 1)
Quarter: 2015Q1

REPORT INFORMATION
  Report Type: Spontaneous
  Country: US (occurrence: US)
  Receive Date: 20150217
  Receipt Date: 20150217
  Transmission Date: 20150721
  Serious: Yes (Hospitalization)
  Sender: FDA-Public Use
  Company Number: US-SA-2015SA017310

PATIENT
  Age: 49 Year
  Sex: Female
  Weight: 57 kg

DRUGS (18)
  1. BENADRYL [Suspect]
     Active Substance: DIPHENHYDRAMINE HYDROCHLORIDE
     Route: 065
     Dates: start: 20141210
  2. FIDAXOMICIN [Concomitant]
     Active Substance: FIDAXOMICIN
  3. POTASSIUM CHLORIDE. [Concomitant]
     Active Substance: POTASSIUM CHLORIDE
     Dates: start: 20141013
  4. DEMEROL [Suspect]
     Active Substance: MEPERIDINE HYDROCHLORIDE
     Route: 065
     Dates: start: 20141210
  5. DEFERASIROX [Concomitant]
     Active Substance: DEFERASIROX
     Dates: start: 20141121
  6. LEVAQUIN [Concomitant]
     Active Substance: LEVOFLOXACIN
     Dates: start: 20141020
  7. AMBIEN [Concomitant]
     Active Substance: ZOLPIDEM TARTRATE
     Dates: start: 20130909
  8. ZOFRAN [Concomitant]
     Active Substance: ONDANSETRON HYDROCHLORIDE
     Dates: start: 20130909
  9. SPIRONOLACTONE. [Concomitant]
     Active Substance: SPIRONOLACTONE
  10. ZOVIRAX [Concomitant]
     Active Substance: ACYCLOVIR
     Dates: start: 20141020
  11. LOPRESSOR [Concomitant]
     Active Substance: METOPROLOL TARTRATE
     Dates: start: 20141020
  12. OXYCODONE [Concomitant]
     Active Substance: OXYCODONE
     Dates: start: 20141020
  13. NOXAFIL [Concomitant]
     Active Substance: POSACONAZOLE
     Dates: start: 20141117
  14. KLONOPIN [Concomitant]
     Active Substance: CLONAZEPAM
     Dates: start: 20141020
  15. FAMOTIDINE. [Concomitant]
     Active Substance: FAMOTIDINE
  16. COMPAZINE [Concomitant]
     Active Substance: PROCHLORPERAZINE MALEATE
  17. NEURONTIN [Concomitant]
     Active Substance: GABAPENTIN
     Dates: start: 20141119
  18. MEROPENEM. [Concomitant]
     Active Substance: MEROPENEM
     Dates: start: 201412

REACTIONS (2)
  - Febrile neutropenia [Recovered/Resolved]
  - Mental status changes [Recovered/Resolved]

NARRATIVE: CASE EVENT DATE: 20141210
